FAERS Safety Report 12549251 (Version 1)
Quarter: 2016Q3

REPORT INFORMATION
  Report Type: Spontaneous
  Country: DE (occurrence: DE)
  Receive Date: 20160712
  Receipt Date: 20160712
  Transmission Date: 20161109
  Serious: Yes (Hospitalization)
  Sender: FDA-Public Use
  Company Number: DE-ASTRAZENECA-2016SE73586

PATIENT
  Age: 28963 Day
  Sex: Male
  Weight: 80 kg

DRUGS (4)
  1. BRILIQUE [Suspect]
     Active Substance: TICAGRELOR
     Dosage: 90 MILLIGRAMS, UNKNOWN FREQUENCY, 12 TABLETS
     Route: 048
  2. CANDESARTAN [Concomitant]
     Active Substance: CANDESARTAN
  3. METFORMIN LICH [Concomitant]
  4. GLIMEPIRID [Concomitant]
     Active Substance: GLIMEPIRIDE

REACTIONS (3)
  - Pruritus generalised [Recovering/Resolving]
  - Gait disturbance [Recovering/Resolving]
  - Dyspnoea [Recovering/Resolving]

NARRATIVE: CASE EVENT DATE: 20160613
